FAERS Safety Report 5309212-6 (Version None)
Quarter: 2007Q2

REPORT INFORMATION
  Report Type: 
  Country: None (occurrence: None)
  Receive Date: 20070423
  Receipt Date: 20070409
  Transmission Date: 20071010
  Serious: Yes (Death)
  Sender: FDA-Public Use
  Company Number: RENA-12165

PATIENT
  Age: 71 Year
  Sex: Male

DRUGS (10)
  1. RENAGEL [Suspect]
     Indication: HYPERPHOSPHATAEMIA
     Dosage: 2.4 G TID PO
     Route: 048
     Dates: start: 20060921
  2. INSULIN [Concomitant]
  3. LABETALOL HCL [Concomitant]
  4. LEXAPRO [Concomitant]
  5. LOTREL [Concomitant]
  6. TOPROL-XL [Concomitant]
  7. SENSIPAR [Concomitant]
  8. CLONIDINE [Concomitant]
  9. ARICEPT [Concomitant]
  10. GLUCOTROL [Concomitant]

REACTIONS (4)
  - CARDIAC ARREST [None]
  - CARDIAC FAILURE CONGESTIVE [None]
  - FOAMING AT MOUTH [None]
  - RESPIRATION ABNORMAL [None]
